FAERS Safety Report 7506089-5 (Version None)
Quarter: 2011Q2

REPORT INFORMATION
  Report Type: 
  Country: None (occurrence: None)
  Receive Date: 20110526
  Receipt Date: 20110523
  Transmission Date: 20111010
  Serious: Yes (Other)
  Sender: FDA-Public Use
  Company Number: HU-ROCHE-778873

PATIENT
  Age: 80 Year
  Sex: Female

DRUGS (3)
  1. BONIVA [Suspect]
     Indication: OSTEOPOROSIS
     Route: 042
     Dates: end: 20110428
  2. BERES [Suspect]
     Indication: OSTEOPOROSIS
     Dosage: DRUG: BERES- CALCIUM
     Route: 065
  3. VITAMIN D [Concomitant]

REACTIONS (6)
  - PAIN IN JAW [None]
  - DIARRHOEA [None]
  - BURNING SENSATION MUCOSAL [None]
  - CHAPPED LIPS [None]
  - CONSTIPATION [None]
  - INJECTION SITE SWELLING [None]
